FAERS Safety Report 5132326-0 (Version None)
Quarter: 2006Q4

REPORT INFORMATION
  Report Type: 
  Country: None (occurrence: None)
  Receive Date: 20061019
  Receipt Date: 20061019
  Transmission Date: 20070319
  Serious: No
  Sender: FDA-Public Use
  Company Number: None

PATIENT
  Age: 66 Year
  Sex: Male
  Weight: 84.369 kg

DRUGS (5)
  1. CASODEX [Suspect]
     Indication: HEPATITIS
     Dosage: 50 MG DAILY
     Dates: start: 20060727, end: 20060921
  2. CASODEX [Suspect]
     Indication: TRANSAMINASES INCREASED
     Dosage: 50 MG DAILY
     Dates: start: 20060727, end: 20060921
  3. LUPRON [Concomitant]
  4. MULTIVITS [Concomitant]
  5. LUPRON [Concomitant]

REACTIONS (2)
  - ALANINE AMINOTRANSFERASE INCREASED [None]
  - ASPARTATE AMINOTRANSFERASE INCREASED [None]
